FAERS Safety Report 6960325-2 (Version None)
Quarter: 2010Q3

REPORT INFORMATION
  Report Type: 
  Country: None (occurrence: None)
  Receive Date: 20100901
  Receipt Date: 20100818
  Transmission Date: 20110219
  Serious: Yes (Hospitalization)
  Sender: FDA-Public Use
  Company Number: US-ASTRAZENECA-2010SE38892

PATIENT
  Age: 62 Year
  Sex: Male
  Weight: 102.5 kg

DRUGS (8)
  1. CRESTOR [Suspect]
     Route: 048
  2. NIASPAN [Suspect]
     Indication: DYSLIPIDAEMIA
     Route: 048
     Dates: start: 20050101
  3. NIASPAN [Suspect]
     Route: 048
  4. SUCRALFATE [Concomitant]
     Dosage: AS NEEDED
  5. FEXOFENADINE HCL [Concomitant]
     Dosage: AS NEEDED
  6. VALSARTAN [Concomitant]
  7. CARVEDILOL [Concomitant]
  8. ASPIRIN [Concomitant]

REACTIONS (3)
  - FLUSHING [None]
  - MYALGIA [None]
  - OEDEMA PERIPHERAL [None]
